FAERS Safety Report 6813315-4 (Version None)
Quarter: 2010Q3

REPORT INFORMATION
  Report Type: 
  Country: None (occurrence: None)
  Receive Date: 20100701
  Receipt Date: 20100628
  Transmission Date: 20110219
  Serious: Yes (Hospitalization, Other)
  Sender: FDA-Public Use
  Company Number: RU-BAYER-201030434GPV

PATIENT
  Age: 29 Year
  Sex: Female

DRUGS (4)
  1. BETAFERON [Suspect]
     Indication: MULTIPLE SCLEROSIS
     Route: 058
     Dates: start: 20071117, end: 20091216
  2. BETAFERON [Suspect]
     Dosage: DOSE 0,25
     Route: 058
     Dates: start: 20100208
  3. ENAP [Concomitant]
     Indication: HYPERTENSION
     Dosage: TOTAL DAILY DOSE: 15 MG
     Route: 065
  4. ACETYLSALICYLIC ACID [Concomitant]
     Indication: ANTIPLATELET THERAPY
     Dosage: TOTAL DAILY DOSE: 1 DF
     Route: 048

REACTIONS (4)
  - ABORTION MISSED [None]
  - DEPRESSION [None]
  - PREGNANCY [None]
  - TENSION [None]
